FAERS Safety Report 17962706 (Version 1)
Quarter: 2020Q2

REPORT INFORMATION
  Report Type: Spontaneous
  Country: US (occurrence: US)
  Receive Date: 20200630
  Receipt Date: 20200630
  Transmission Date: 20200714
  Serious: Yes (Hospitalization)
  Sender: FDA-Public Use
  Company Number: US-PFIZER INC-2020-07106

PATIENT
  Sex: Female

DRUGS (5)
  1. MEKTOVI [Suspect]
     Active Substance: BINIMETINIB
     Indication: NEOPLASM
     Dosage: 45 MG, 2X/DAY
     Route: 048
  2. BRAFTOVI [Suspect]
     Active Substance: ENCORAFENIB
     Indication: NEOPLASM
     Dosage: 450 MG, 1X/DAY
     Route: 048
  3. BRAFTOVI [Suspect]
     Active Substance: ENCORAFENIB
     Dosage: 450 MG, 1X/DAY
     Route: 048
  4. BRAFTOVI [Suspect]
     Active Substance: ENCORAFENIB
     Dosage: 450 MG, 1X/DAY
     Route: 048
  5. BRAFTOVI [Suspect]
     Active Substance: ENCORAFENIB
     Dosage: 450 MG, 1X/DAY
     Route: 048

REACTIONS (1)
  - Tumour excision [Unknown]
